FAERS Safety Report 9923596 (Version 1)
Quarter: 2014Q1

REPORT INFORMATION
  Report Type: Spontaneous
  Country: US (occurrence: US)
  Receive Date: 20140225
  Receipt Date: 20140225
  Transmission Date: 20141002
  Serious: No
  Sender: FDA-Public Use
  Company Number: US-AMGEN-USASP2013088945

PATIENT
  Age: 65 Year
  Sex: Female

DRUGS (15)
  1. ENBREL [Suspect]
     Indication: RHEUMATOID ARTHRITIS
     Dosage: 50 MG, QWK
     Route: 058
     Dates: start: 201312
  2. OXYBUTYNIN [Concomitant]
     Dosage: UNK
  3. SYNTHROID [Concomitant]
     Dosage: UNK
  4. METOPROLOL [Concomitant]
     Dosage: UNK
  5. PRILOSEC                           /00661201/ [Concomitant]
     Dosage: UNK
  6. ISOSORBIDE [Concomitant]
     Dosage: UNK
  7. PRISTIQ [Concomitant]
     Dosage: UNK
  8. VITAMIN D                          /00107901/ [Concomitant]
     Dosage: UNK
  9. VITAMIN B12                        /00056201/ [Concomitant]
     Dosage: UNK
  10. LIPITOR [Concomitant]
     Dosage: UNK
  11. LASIX                              /00032601/ [Concomitant]
     Dosage: UNK
  12. TERAZOSIN [Concomitant]
     Dosage: UNK
  13. ZETIA [Concomitant]
     Dosage: UNK
  14. AMITRIPTYLINE [Concomitant]
     Dosage: UNK
  15. POTASSIUM [Concomitant]
     Dosage: UNK

REACTIONS (1)
  - Sinusitis [Unknown]
